FAERS Safety Report 15363300 (Version 2)
Quarter: 2018Q3

REPORT INFORMATION
  Report Type: Spontaneous
  Country: PT (occurrence: RU)
  Receive Date: 20180907
  Receipt Date: 20180920
  Transmission Date: 20181010
  Serious: Yes (Life-Threatening, Other)
  Sender: FDA-Public Use
  Company Number: PT-SUNOVION-2018SUN003468

PATIENT
  Age: 29 Year
  Sex: Male

DRUGS (5)
  1. ESLICARBAZEPINE ACETATE [Suspect]
     Active Substance: ESLICARBAZEPINE ACETATE
     Indication: PARTIAL SEIZURES
     Dosage: 800 MG, UNK, IN THE EVENING
     Dates: start: 20180616, end: 20180618
  2. ESLICARBAZEPINE ACETATE [Suspect]
     Active Substance: ESLICARBAZEPINE ACETATE
     Dosage: 1200 MG, DAILY, 400 MG IN THE MORNING AND 800 MG IN THE EVENING
     Route: 048
     Dates: start: 20180619, end: 20180619
  3. TEGRETOL [Concomitant]
     Active Substance: CARBAMAZEPINE
     Dosage: 1600 MG, BID
     Route: 048
     Dates: start: 20180620
  4. TEGRETOL [Concomitant]
     Active Substance: CARBAMAZEPINE
     Dosage: 800 MG, DAILY
     Route: 048
     Dates: start: 20180616, end: 20180618
  5. TEGRETOL [Concomitant]
     Active Substance: CARBAMAZEPINE
     Indication: PARTIAL SEIZURES
     Dosage: 1600 MG, DAILY
     Route: 048
     Dates: start: 2016, end: 20180616

REACTIONS (2)
  - Status epilepticus [Recovered/Resolved]
  - Off label use [Unknown]

NARRATIVE: CASE EVENT DATE: 20180616
